FAERS Safety Report 22244532 (Version 1)
Quarter: 2023Q2

REPORT INFORMATION
  Report Type: Spontaneous
  Country: US (occurrence: None)
  Receive Date: 20230422
  Receipt Date: 20230422
  Transmission Date: 20230721
  Serious: No
  Sender: FDA-Public Use
  Company Number: None

PATIENT
  Age: 15 Year
  Sex: Female
  Weight: 70.65 kg

DRUGS (8)
  1. DEEP CLEANSING FOAMING ACNE SCRUB [Suspect]
     Active Substance: SALICYLIC ACID
     Indication: Acne
     Route: 061
     Dates: start: 20230412, end: 20230417
  2. COSMETICS [Suspect]
     Active Substance: COSMETICS
  3. ALBUTEROL [Concomitant]
     Active Substance: ALBUTEROL
  4. FLOVENT HFA [Concomitant]
     Active Substance: FLUTICASONE PROPIONATE
  5. TRIAMCINOLONE [Concomitant]
     Active Substance: TRIAMCINOLONE
  6. PAXIL [Concomitant]
     Active Substance: PAROXETINE HYDROCHLORIDE
  7. VITAMINS [Concomitant]
     Active Substance: VITAMINS
  8. CETIRIZINE [Concomitant]
     Active Substance: CETIRIZINE HYDROCHLORIDE

REACTIONS (7)
  - Rash [None]
  - Skin irritation [None]
  - Sneezing [None]
  - Lacrimation increased [None]
  - Allergic respiratory symptom [None]
  - Exposure to allergen [None]
  - Product use complaint [None]

NARRATIVE: CASE EVENT DATE: 20230412
